FAERS Safety Report 9879265 (Version 1)
Quarter: 2014Q1

REPORT INFORMATION
  Report Type: Spontaneous
  Country: US (occurrence: US)
  Receive Date: 20140206
  Receipt Date: 20140206
  Transmission Date: 20141002
  Serious: Yes (Disabling, Other)
  Sender: FDA-Public Use
  Company Number: PHEH2014US002387

PATIENT
  Sex: Female

DRUGS (13)
  1. TOBI [Suspect]
     Indication: CYSTIC FIBROSIS
     Dosage: UNK
     Dates: start: 2011
  2. ALBUTEROL [Concomitant]
     Dosage: 0.083 UKN, UNK
  3. PULMICORT [Concomitant]
     Dosage: UNK
  4. KEPPRA [Concomitant]
     Dosage: UNK
  5. TOPAMAX [Concomitant]
     Dosage: UNK
  6. ONFI [Concomitant]
     Dosage: UNK
  7. BACLOFEN [Concomitant]
     Dosage: UNK
  8. BETHANECHOL [Concomitant]
     Dosage: UNK
  9. REGLAN//METOCLOPRAMIDE [Concomitant]
     Dosage: UNK
  10. KLONOPIN [Concomitant]
     Dosage: UNK
  11. PEP ACID [Concomitant]
     Dosage: UNK
  12. MULTIVITAMIN//VITAMINS NOS [Concomitant]
     Dosage: UNK
  13. IRON [Concomitant]
     Dosage: UNK

REACTIONS (3)
  - Road traffic accident [Unknown]
  - Skin bacterial infection [Unknown]
  - Convulsion [Unknown]
